FAERS Safety Report 8885791 (Version 1)
Quarter: 2012Q4

REPORT INFORMATION
  Report Type: 
  Country: US (occurrence: US)
  Receive Date: 20121101
  Receipt Date: 20121101
  Transmission Date: 20130627
  Serious: Yes (Other)
  Sender: FDA-Public Use
  Company Number: PHHY2012US097744

PATIENT
  Age: 62 Year
  Sex: Female
  Weight: 52.15 kg

DRUGS (3)
  1. GILENYA [Suspect]
     Indication: MULTIPLE SCLEROSIS
     Dosage: 0.5 mg, QD
     Route: 048
     Dates: start: 20110504, end: 20120518
  2. ZOLPIDEM [Concomitant]
  3. BONIVA [Concomitant]

REACTIONS (5)
  - Dysuria [Unknown]
  - Blood urine present [Unknown]
  - Gait disturbance [Unknown]
  - Balance disorder [Unknown]
  - Liver function test abnormal [Unknown]
